FAERS Safety Report 6249753-0 (Version None)
Quarter: 2009Q2

REPORT INFORMATION
  Report Type: 
  Country: None (occurrence: None)
  Receive Date: 20090629
  Receipt Date: 20090623
  Transmission Date: 20091009
  Serious: Yes (Death)
  Sender: FDA-Public Use
  Company Number: IT-AVENTIS-200916296GDDC

PATIENT
  Sex: Male

DRUGS (4)
  1. DOCETAXEL [Suspect]
     Indication: NON-SMALL CELL LUNG CANCER
     Route: 042
     Dates: start: 20090610, end: 20090610
  2. LANOXIN [Concomitant]
     Dates: end: 20090616
  3. DILATREND [Concomitant]
     Dates: end: 20090616
  4. SINTROM [Concomitant]
     Dates: end: 20090616

REACTIONS (2)
  - FEBRILE NEUTROPENIA [None]
  - RESPIRATORY FAILURE [None]
